FAERS Safety Report 20070378 (Version 1)
Quarter: 2021Q4

REPORT INFORMATION
  Report Type: Report from Study
  Country: US (occurrence: US)
  Receive Date: 20211115
  Receipt Date: 20211115
  Transmission Date: 20220303
  Serious: No
  Sender: FDA-Public Use
  Company Number: US-Ipsen Biopharmaceuticals, Inc.-2021-27996

PATIENT
  Age: 79 Year
  Sex: Male

DRUGS (2)
  1. SOMATULINE DEPOT [Suspect]
     Active Substance: LANREOTIDE ACETATE
     Indication: Gastroenteropancreatic neuroendocrine tumour disease
     Dosage: 120MG/0.5ML
     Route: 058
     Dates: start: 202106, end: 202110
  2. XERMELO [Suspect]
     Active Substance: TELOTRISTAT ETHYL
     Indication: Gastroenteropancreatic neuroendocrine tumour disease
     Dosage: DOSE NOT REPORTED
     Route: 065

REACTIONS (1)
  - Serum serotonin decreased [Recovering/Resolving]

NARRATIVE: CASE EVENT DATE: 20211001
